FAERS Safety Report 20962605 (Version 1)
Quarter: 2022Q2

REPORT INFORMATION
  Report Type: Report from Study
  Country: US (occurrence: None)
  Receive Date: 20220615
  Receipt Date: 20220615
  Transmission Date: 20220721
  Serious: No
  Sender: FDA-Public Use
  Company Number: US-MDD US Operations-MDD202101-000174

PATIENT
  Age: 87 Year
  Sex: Male
  Weight: 83.5 kg

DRUGS (22)
  1. APOKYN [Suspect]
     Active Substance: APOMORPHINE HYDROCHLORIDE
     Indication: Parkinson^s disease
     Route: 058
     Dates: start: 20210127
  2. APOKYN [Suspect]
     Active Substance: APOMORPHINE HYDROCHLORIDE
     Route: 058
     Dates: start: 2021
  3. APOKYN [Suspect]
     Active Substance: APOMORPHINE HYDROCHLORIDE
     Route: 058
  4. APOKYN [Suspect]
     Active Substance: APOMORPHINE HYDROCHLORIDE
     Route: 058
  5. DUOPA [Suspect]
     Active Substance: CARBIDOPA\LEVODOPA
     Indication: Product used for unknown indication
     Dosage: NOT PROVIDED
  6. CARBIDOPA\LEVODOPA [Concomitant]
     Active Substance: CARBIDOPA\LEVODOPA
     Dosage: NOT PROVIDED
  7. CARBIDOPA\LEVODOPA [Concomitant]
     Active Substance: CARBIDOPA\LEVODOPA
     Dosage: NOT PROVIDED
  8. NUPLAZID [Concomitant]
     Active Substance: PIMAVANSERIN TARTRATE
     Dosage: NOT PROVIDED
  9. PROSCAR [Concomitant]
     Active Substance: FINASTERIDE
     Dosage: NOT PROVIDED
  10. SINEMET [Concomitant]
     Active Substance: CARBIDOPA\LEVODOPA
     Dosage: NOT PROVIDED
  11. FLOMAX [Concomitant]
     Active Substance: TAMSULOSIN HYDROCHLORIDE
     Dosage: NOT PROVIDED
  12. VIAGRA [Concomitant]
     Active Substance: SILDENAFIL CITRATE
     Dosage: NOT PROVIDED
  13. FLONASE [Concomitant]
     Active Substance: FLUTICASONE PROPIONATE
     Dosage: NOT PROVIDED
  14. SEROQUEL [Concomitant]
     Active Substance: QUETIAPINE FUMARATE
     Dosage: NOT PROVIDED
  15. MYRBETRIQ [Concomitant]
     Active Substance: MIRABEGRON
     Dosage: NOT PROVIDED
  16. LISINOPRIL [Concomitant]
     Active Substance: LISINOPRIL
     Dosage: NOT PROVIDED
  17. TRADJENTA [Concomitant]
     Active Substance: LINAGLIPTIN
     Dosage: NOT PROVIDED
  18. ALEVE [Concomitant]
     Active Substance: NAPROXEN SODIUM
     Dosage: NOT PROVIDED
  19. MIRALAX [Concomitant]
     Active Substance: POLYETHYLENE GLYCOL 3350
     Dosage: NOT PROVIDED
  20. GABAPENTIN [Concomitant]
     Active Substance: GABAPENTIN
     Dosage: NOT PROVIDED
  21. LEVSIN SL [Concomitant]
     Active Substance: HYOSCYAMINE SULFATE
     Dosage: NOT PROVIDED
  22. TOPROL XL [Concomitant]
     Active Substance: METOPROLOL SUCCINATE
     Dosage: NOT PROVIDED

REACTIONS (9)
  - Infection [Not Recovered/Not Resolved]
  - General physical health deterioration [Not Recovered/Not Resolved]
  - Gait inability [Not Recovered/Not Resolved]
  - Yawning [Recovered/Resolved]
  - Hyperhidrosis [Recovered/Resolved]
  - Prescribed overdose [Unknown]
  - Device breakage [Unknown]
  - Device breakage [Unknown]
  - Incorrect dose administered by device [Unknown]

NARRATIVE: CASE EVENT DATE: 20210101
